FAERS Safety Report 12952733 (Version 2)
Quarter: 2018Q2

REPORT INFORMATION
  Report Type: Spontaneous
  Country: US (occurrence: US)
  Receive Date: 20161117
  Receipt Date: 20180515
  Transmission Date: 20180711
  Serious: No
  Sender: FDA-Public Use
  Company Number: US-SA-2016SA166844

PATIENT
  Age: 38 Year
  Sex: Female

DRUGS (5)
  1. APIDRA [Suspect]
     Active Substance: INSULIN GLULISINE
     Route: 065
     Dates: start: 2014
  2. SOLOSTAR [Concomitant]
     Active Substance: DEVICE
  3. LANTUS SOLOSTAR [Suspect]
     Active Substance: INSULIN GLARGINE
     Indication: TYPE 2 DIABETES MELLITUS
     Dosage: DOSE: 36 UNITS AM/ 30 UNITS PM
     Route: 065
     Dates: start: 2014
  4. TOUJEO [Suspect]
     Active Substance: INSULIN GLARGINE
     Route: 065
  5. SOLOSTAR [Concomitant]
     Active Substance: DEVICE
     Indication: TYPE 2 DIABETES MELLITUS
     Dates: start: 2014

REACTIONS (5)
  - Drug hypersensitivity [Unknown]
  - Skin irritation [Unknown]
  - Weight increased [Unknown]
  - Product use issue [Unknown]
  - Urticaria [Unknown]
